FAERS Safety Report 6735160-0 (Version None)
Quarter: 2010Q2

REPORT INFORMATION
  Report Type: 
  Country: None (occurrence: None)
  Receive Date: 20100521
  Receipt Date: 20100511
  Transmission Date: 20101027
  Serious: Yes (Death)
  Sender: FDA-Public Use
  Company Number: US-PFIZER INC-2010058503

PATIENT
  Age: 27 Year
  Sex: Female

DRUGS (9)
  1. AZITHROMYCIN [Suspect]
     Indication: UPPER RESPIRATORY TRACT INFECTION
  2. TIZANIDINE [Suspect]
  3. BUPROPION [Concomitant]
  4. TRAZODONE [Concomitant]
  5. ZOLPIDEM [Concomitant]
  6. TRAMADOL [Concomitant]
  7. FEXOFENADINE [Concomitant]
  8. IBUPROFEN [Concomitant]
  9. SUMATRIPTAN [Concomitant]

REACTIONS (1)
  - TORSADE DE POINTES [None]
